FAERS Safety Report 6195108-7 (Version None)
Quarter: 2009Q2

REPORT INFORMATION
  Report Type: 
  Country: None (occurrence: None)
  Receive Date: 20090519
  Receipt Date: 20090513
  Transmission Date: 20091009
  Serious: Yes (Hospitalization)
  Sender: FDA-Public Use
  Company Number: US-GILEAD-2009-0021959

PATIENT
  Sex: Male
  Weight: 81.72 kg

DRUGS (11)
  1. LETAIRIS [Suspect]
     Indication: PULMONARY ARTERIAL HYPERTENSION
     Route: 048
     Dates: start: 20090422
  2. ATENOLOL [Concomitant]
  3. WARFARIN SODIUM [Concomitant]
  4. LIPITOR [Concomitant]
  5. FUROSEMIDE [Concomitant]
  6. SYMBICORT [Concomitant]
  7. NEXIUM [Concomitant]
  8. ZYVOX [Concomitant]
  9. ACIDOPHILUS [Concomitant]
  10. POTASSIUM CHLORIDE [Concomitant]
  11. MAGNESIUM OXIDE [Concomitant]

REACTIONS (1)
  - SURGERY [None]
